FAERS Safety Report 7544089-X (Version None)
Quarter: 2011Q2

REPORT INFORMATION
  Report Type: 
  Country: None (occurrence: None)
  Receive Date: 20110613
  Receipt Date: 20051111
  Transmission Date: 20111010
  Serious: Yes (Other)
  Sender: FDA-Public Use
  Company Number: PHHO2005NZ17955

PATIENT
  Sex: Male

DRUGS (1)
  1. CLOZAPINE [Suspect]
     Indication: SCHIZOPHRENIA
     Dates: start: 19960726

REACTIONS (6)
  - HAEMATOCRIT INCREASED [None]
  - RED BLOOD CELL COUNT INCREASED [None]
  - LYMPHOCYTOSIS [None]
  - HAEMOGLOBIN INCREASED [None]
  - VIRAL INFECTION [None]
  - LYMPHOCYTE MORPHOLOGY ABNORMAL [None]
